FAERS Safety Report 9851238 (Version 2)
Quarter: 2014Q1

REPORT INFORMATION
  Report Type: Report from Study
  Country: US (occurrence: US)
  Receive Date: 20140128
  Receipt Date: 20140131
  Transmission Date: 20141002
  Serious: Yes (Life-Threatening, Hospitalization)
  Sender: FDA-Public Use
  Company Number: US-TEVA-459003USA

PATIENT
  Age: 1 Year
  Sex: Female
  Weight: 10.68 kg

DRUGS (15)
  1. LESTAURTINIB [Suspect]
     Indication: ACUTE LYMPHOCYTIC LEUKAEMIA
     Route: 048
     Dates: end: 20140118
  2. CYCLOPHOSPHAMIDE [Suspect]
     Indication: ACUTE LYMPHOCYTIC LEUKAEMIA
     Dates: end: 20140106
  3. CYTARABINE [Suspect]
     Indication: ACUTE LYMPHOCYTIC LEUKAEMIA
     Dates: end: 20131212
  4. CYTARABINE [Suspect]
     Dosage: DAY 1
     Route: 037
  5. DEXAMETHASONE [Suspect]
     Indication: ACUTE LYMPHOCYTIC LEUKAEMIA
     Dates: end: 20131216
  6. ETOPOSIDE [Suspect]
     Indication: ACUTE LYMPHOCYTIC LEUKAEMIA
     Route: 042
     Dates: end: 20140106
  7. HYDROCORTISONE [Suspect]
     Indication: ACUTE LYMPHOCYTIC LEUKAEMIA
     Dates: end: 20131212
  8. METHOTREXATE [Suspect]
     Indication: ACUTE LYMPHOCYTIC LEUKAEMIA
     Dates: end: 20131219
  9. METHOTREXATE [Suspect]
     Dosage: DAYS 1 AND 8
     Route: 042
  10. METHOTREXATE [Suspect]
     Dosage: DAYS 1 AND 8
     Route: 042
  11. METHOTREXATE [Suspect]
     Dosage: DAY 1 AND DAY 8
     Route: 042
  12. METHOTREXATE [Suspect]
     Dosage: DAY 2
     Route: 042
  13. METHOTREXATE [Suspect]
     Dosage: DAY 9
     Route: 037
  14. VINCRISTINE [Suspect]
     Indication: ACUTE LYMPHOCYTIC LEUKAEMIA
     Dates: end: 20131212
  15. MERCAPTOPURINE [Suspect]
     Dates: end: 20131219

REACTIONS (2)
  - Sepsis [Recovered/Resolved]
  - Incorrect route of drug administration [Recovered/Resolved]
